FAERS Safety Report 15797939 (Version 1)
Quarter: 2019Q1

REPORT INFORMATION
  Report Type: Spontaneous
  Country: US (occurrence: US)
  Receive Date: 20190108
  Receipt Date: 20190108
  Transmission Date: 20190417
  Serious: No
  Sender: FDA-Public Use
  Company Number: US-GLAXOSMITHKLINE-US2019000786

PATIENT
  Sex: Female

DRUGS (2)
  1. PREVACID 24 HR [Suspect]
     Active Substance: LANSOPRAZOLE
     Indication: AUTOIMMUNE DISORDER
     Dosage: UNK UNK, QD
  2. LANSOPRAZOLE. [Suspect]
     Active Substance: LANSOPRAZOLE
     Indication: PRODUCT USED FOR UNKNOWN INDICATION
     Dosage: UNK

REACTIONS (4)
  - Off label use [Unknown]
  - Incorrect product administration duration [Unknown]
  - Drug ineffective [Unknown]
  - Product use in unapproved indication [Unknown]
